FAERS Safety Report 17389162 (Version 3)
Quarter: 2020Q2

REPORT INFORMATION
  Report Type: Spontaneous
  Country: US (occurrence: US)
  Receive Date: 20200206
  Receipt Date: 20200403
  Transmission Date: 20200713
  Serious: No
  Sender: FDA-Public Use
  Company Number: US-ASTRAZENECA-2020SE13573

PATIENT
  Age: 32078 Day
  Sex: Female
  Weight: 51.7 kg

DRUGS (1)
  1. BEVESPI AEROSPHERE [Suspect]
     Active Substance: FORMOTEROL FUMARATE\GLYCOPYRROLATE
     Indication: CHRONIC OBSTRUCTIVE PULMONARY DISEASE
     Dosage: 9MCG/ 4.8MCG, 2 PUFFS TWO TIMES A DAY
     Route: 055

REACTIONS (5)
  - Wrong technique in device usage process [Unknown]
  - Dysgeusia [Recovered/Resolved]
  - Device effect decreased [Unknown]
  - Device issue [Unknown]
  - Dyspnoea [Recovered/Resolved]

NARRATIVE: CASE EVENT DATE: 20200118
